FAERS Safety Report 6253409-8 (Version None)
Quarter: 2009Q3

REPORT INFORMATION
  Report Type: 
  Country: None (occurrence: None)
  Receive Date: 20090701
  Receipt Date: 20090625
  Transmission Date: 20100115
  Serious: Yes (Other)
  Sender: FDA-Public Use
  Company Number: DE-ABBOTT-09P-062-0581953-00

PATIENT
  Sex: Male

DRUGS (5)
  1. HUMIRA [Suspect]
     Indication: CROHN'S DISEASE
     Route: 058
     Dates: start: 20080617, end: 20080617
  2. HUMIRA [Suspect]
     Route: 058
     Dates: start: 20080702, end: 20080702
  3. HUMIRA [Suspect]
     Route: 058
  4. AZATHIOPRIN [Concomitant]
     Indication: CROHN'S DISEASE
  5. PREDNISOLONE [Concomitant]
     Indication: CROHN'S DISEASE

REACTIONS (1)
  - DEMYELINATING POLYNEUROPATHY [None]
